FAERS Safety Report 18440072 (Version 1)
Quarter: 2020Q4

REPORT INFORMATION
  Report Type: Spontaneous
  Country: US (occurrence: US)
  Receive Date: 20201028
  Receipt Date: 20201028
  Transmission Date: 20210114
  Serious: Yes (Disabling)
  Sender: FDA-Public Use
  Company Number: None

PATIENT
  Age: 73 Year
  Sex: Female
  Weight: 80.1 kg

DRUGS (11)
  1. LEVOTHYROXIN [Suspect]
     Active Substance: LEVOTHYROXINE
     Indication: PARATHYROID DISORDER
     Dosage: ?          QUANTITY:1 TABLET(S);?
     Route: 048
     Dates: start: 20200310, end: 20201005
  2. FISH OIL [Concomitant]
     Active Substance: FISH OIL
  3. TUMERIC [Concomitant]
     Active Substance: HERBALS\TURMERIC
  4. SYNTHROID [Concomitant]
     Active Substance: LEVOTHYROXINE SODIUM
  5. MUSHROOM COMPLEX [Concomitant]
  6. SUPPLEMENTS [Concomitant]
     Active Substance: UNSPECIFIED INGREDIENT
  7. NORVASC [Concomitant]
     Active Substance: AMLODIPINE BESYLATE
  8. CALCIUM CITRATE PLUS VITAMIN D [Concomitant]
  9. GINGER. [Concomitant]
     Active Substance: GINGER
  10. MULIT-VITAMIN [Concomitant]
  11. LEVOTHYROXIN [Suspect]
     Active Substance: LEVOTHYROXINE
     Indication: THYROID DISORDER
     Dosage: ?          QUANTITY:1 TABLET(S);?
     Route: 048
     Dates: start: 20200310, end: 20201005

REACTIONS (9)
  - Asthenia [None]
  - Drug hypersensitivity [None]
  - Product formulation issue [None]
  - Paraesthesia [None]
  - Feeling cold [None]
  - Bone pain [None]
  - Insomnia [None]
  - Feeling abnormal [None]
  - Burning sensation [None]

NARRATIVE: CASE EVENT DATE: 20200916
